FAERS Safety Report 6296685-8 (Version None)
Quarter: 2009Q3

REPORT INFORMATION
  Report Type: 
  Country: None (occurrence: None)
  Receive Date: 20090804
  Receipt Date: 20090727
  Transmission Date: 20100115
  Serious: Yes (Death)
  Sender: FDA-Public Use
  Company Number: US-ELI_LILLY_AND_COMPANY-US200902004791

PATIENT
  Age: 70 Year
  Sex: Female
  Weight: 74.83 kg

DRUGS (13)
  1. BYETTA [Suspect]
     Indication: DIABETES MELLITUS
     Dosage: 5 UG, 2/D
     Dates: start: 20070801, end: 20071001
  2. BYETTA [Suspect]
     Dosage: 10 UG, 2/D
     Dates: start: 20071001, end: 20080424
  3. HUMALOG [Concomitant]
  4. LANTUS [Concomitant]
  5. ZOCOR [Concomitant]
  6. METFORMIN [Concomitant]
  7. ATACAND [Concomitant]
  8. ALPRAZOLAM [Concomitant]
  9. HYDROXYZINE [Concomitant]
  10. HYDROCHLOROTHIAZIDE [Concomitant]
  11. TOPROL-XL [Concomitant]
  12. NEURONTIN [Concomitant]
  13. ZOLOFT [Concomitant]

REACTIONS (7)
  - ABDOMINAL PAIN [None]
  - BACK PAIN [None]
  - DIARRHOEA [None]
  - NAUSEA [None]
  - OFF LABEL USE [None]
  - PANCREATIC CARCINOMA [None]
  - VOMITING [None]
